FAERS Safety Report 22057185 (Version 1)
Quarter: 2023Q1

REPORT INFORMATION
  Report Type: Spontaneous
  Country: PL (occurrence: PL)
  Receive Date: 20230303
  Receipt Date: 20230303
  Transmission Date: 20230417
  Serious: Yes (Other)
  Sender: FDA-Public Use
  Company Number: PL-TOLMAR, INC.-23PL038398

PATIENT
  Age: 83 Year
  Sex: Male

DRUGS (9)
  1. ELIGARD [Suspect]
     Active Substance: LEUPROLIDE ACETATE
     Indication: Prostate cancer
     Dosage: UNK, Q 3 MONTH
     Dates: start: 2013
  2. ELIGARD [Suspect]
     Active Substance: LEUPROLIDE ACETATE
     Indication: Adenocarcinoma
  3. FLUTAMIDE [Suspect]
     Active Substance: FLUTAMIDE
     Indication: Prostate cancer
     Dosage: 250 MILLIGRAM, TID
     Dates: start: 2013
  4. FLUTAMIDE [Suspect]
     Active Substance: FLUTAMIDE
     Indication: Adenocarcinoma
  5. ENZALUTAMIDE [Suspect]
     Active Substance: ENZALUTAMIDE
     Indication: Hormone-refractory prostate cancer
     Dosage: UNK
     Dates: start: 20191125
  6. ENZALUTAMIDE [Suspect]
     Active Substance: ENZALUTAMIDE
     Indication: Prostatic specific antigen increased
  7. BICALUTAMIDE [Suspect]
     Active Substance: BICALUTAMIDE
     Indication: Prostatic specific antigen increased
     Dosage: 50 MILLIGRAM, QD
     Dates: start: 20170424, end: 20171009
  8. BICALUTAMIDE [Suspect]
     Active Substance: BICALUTAMIDE
     Indication: Adenocarcinoma
     Dosage: 150 MILLIGRAM, QD
     Dates: start: 20171010
  9. BICALUTAMIDE [Suspect]
     Active Substance: BICALUTAMIDE
     Indication: Prostate cancer

REACTIONS (3)
  - Prostatic specific antigen increased [Unknown]
  - Prostate cancer [Unknown]
  - Metastases to bone [Unknown]

NARRATIVE: CASE EVENT DATE: 20170427
